FAERS Safety Report 26098571 (Version 1)
Quarter: 2025Q4

REPORT INFORMATION
  Report Type: Report from Study
  Country: US (occurrence: US)
  Receive Date: 20251127
  Receipt Date: 20251127
  Transmission Date: 20260118
  Serious: Yes (Other)
  Sender: ABBVIE
  Company Number: US-ABBVIE-6562768

PATIENT
  Sex: Female

DRUGS (1)
  1. SKYRIZI [Suspect]
     Active Substance: RISANKIZUMAB-RZAA
     Indication: Psoriatic arthropathy
     Route: 058
     Dates: start: 20241025

REACTIONS (7)
  - Hip fracture [Unknown]
  - Head injury [Unknown]
  - Vision blurred [Unknown]
  - Nightmare [Not Recovered/Not Resolved]
  - Migraine [Not Recovered/Not Resolved]
  - Osteoporosis [Unknown]
  - Fall [Unknown]
